FAERS Safety Report 20611326 (Version 1)
Quarter: 2022Q1

REPORT INFORMATION
  Report Type: Spontaneous
  Country: US (occurrence: None)
  Receive Date: 20220318
  Receipt Date: 20220318
  Transmission Date: 20220423
  Serious: Yes (Hospitalization)
  Sender: FDA-Public Use
  Company Number: None

PATIENT
  Age: 64 Year
  Sex: Male
  Weight: 30.84 kg

DRUGS (11)
  1. STELARA [Suspect]
     Active Substance: USTEKINUMAB
  2. STELARA [Concomitant]
  3. BUDESONIDE [Concomitant]
  4. AMLODIPINE (Norvasc) [Concomitant]
  5. ELIQUIS [Concomitant]
     Active Substance: APIXABAN
  6. ATORVASTATIN [Concomitant]
  7. CYANOCOBALAMIN [Concomitant]
  8. LISINOPRIL [Concomitant]
     Active Substance: LISINOPRIL
  9. RIFAXIMN (XIFAXAN) [Concomitant]
  10. ESOMEPRAZOLE [Concomitant]
  11. KEPPRA [Concomitant]
     Active Substance: LEVETIRACETAM

REACTIONS (4)
  - Hypersomnia [None]
  - Urinary incontinence [None]
  - Sepsis [None]
  - Urinary tract infection [None]

NARRATIVE: CASE EVENT DATE: 20191101
